FAERS Safety Report 9211012 (Version 1)
Quarter: 2013Q2

REPORT INFORMATION
  Report Type: Spontaneous
  Country: US (occurrence: US)
  Receive Date: 20130404
  Receipt Date: 20130404
  Transmission Date: 20140414
  Serious: Yes (Hospitalization)
  Sender: FDA-Public Use
  Company Number: US-UCBSA-081934

PATIENT
  Age: 82 Year
  Sex: Female

DRUGS (2)
  1. NEUPRO [Suspect]
     Indication: PARKINSON^S DISEASE
     Dosage: STRENGTH: 1 MG
     Dates: start: 20130308, end: 20130318
  2. AZILECT [Concomitant]
     Dosage: UNKNOWN DOSE

REACTIONS (2)
  - Rectal haemorrhage [Recovered/Resolved]
  - Tremor [Not Recovered/Not Resolved]
